FAERS Safety Report 6074095-6 (Version None)
Quarter: 2009Q1

REPORT INFORMATION
  Report Type: 
  Country: None (occurrence: None)
  Receive Date: 20090211
  Receipt Date: 20090206
  Transmission Date: 20090719
  Serious: Yes (Death)
  Sender: FDA-Public Use
  Company Number: A0768020A

PATIENT
  Age: 77 Year
  Sex: Male
  Weight: 43 kg

DRUGS (2)
  1. SERETIDE [Suspect]
     Indication: BRONCHITIS
     Route: 055
     Dates: start: 20070101, end: 20081220
  2. AZITHROMYCIN [Concomitant]
     Dosage: 500MG PER DAY
     Dates: start: 20080401

REACTIONS (1)
  - LUNG NEOPLASM MALIGNANT [None]
